FAERS Safety Report 6088664-0 (Version None)
Quarter: 2009Q1

REPORT INFORMATION
  Report Type: 
  Country: None (occurrence: None)
  Receive Date: 20090224
  Receipt Date: 20090216
  Transmission Date: 20090719
  Serious: Yes (Other)
  Sender: FDA-Public Use
  Company Number: JP-BRISTOL-MYERS SQUIBB COMPANY-14516744

PATIENT
  Age: 42 Year
  Sex: Male

DRUGS (2)
  1. ABILIFY [Suspect]
     Indication: SCHIZOPHRENIA
     Route: 048
     Dates: start: 20080501
  2. AKINETON [Concomitant]
     Dosage: FORM = TABS

REACTIONS (2)
  - DELUSION [None]
  - HALLUCINATION, OLFACTORY [None]
